FAERS Safety Report 6003555-9 (Version None)
Quarter: 2008Q4

REPORT INFORMATION
  Report Type: 
  Country: None (occurrence: None)
  Receive Date: 20081216
  Receipt Date: 20081202
  Transmission Date: 20090506
  Serious: Yes (Other)
  Sender: FDA-Public Use
  Company Number: US-ELI_LILLY_AND_COMPANY-US200811000919

PATIENT
  Sex: Female

DRUGS (2)
  1. FORTEO [Suspect]
     Dosage: UNK, UNK
     Dates: end: 20030101
  2. FORTEO [Suspect]
     Dates: start: 20070430

REACTIONS (4)
  - DISLOCATION OF JOINT PROSTHESIS [None]
  - HIP ARTHROPLASTY [None]
  - OSTEOLYSIS [None]
  - PELVIC FRACTURE [None]
